FAERS Safety Report 13840203 (Version 2)
Quarter: 2017Q3

REPORT INFORMATION
  Report Type: Spontaneous
  Country: UG (occurrence: UG)
  Receive Date: 20170807
  Receipt Date: 20170808
  Transmission Date: 20171127
  Serious: Yes (Hospitalization)
  Sender: FDA-Public Use
  Company Number: UG-GLAXOSMITHKLINE-UG2017GSK118798

PATIENT
  Age: 5 Year
  Sex: Male

DRUGS (1)
  1. SERETIDE [Suspect]
     Active Substance: FLUTICASONE PROPIONATE\SALMETEROL XINAFOATE
     Indication: ASTHMA
     Dosage: 2 PUFF(S), BID
     Route: 065
     Dates: start: 2016, end: 201705

REACTIONS (2)
  - Asthma [Recovered/Resolved]
  - Tachyphylaxis [Recovered/Resolved]

NARRATIVE: CASE EVENT DATE: 201704
